FAERS Safety Report 4842854-0 (Version None)
Quarter: 2005Q4

REPORT INFORMATION
  Report Type: 
  Country: None (occurrence: None)
  Receive Date: 20051130
  Receipt Date: 20051117
  Transmission Date: 20060501
  Serious: Yes (Life-Threatening)
  Sender: FDA-Public Use
  Company Number: 2005142523

PATIENT
  Age: 74 Year
  Sex: Female
  Weight: 68 kg

DRUGS (5)
  1. SOLU-MEDROL [Suspect]
     Indication: ILL-DEFINED DISORDER
     Dosage: 125 MG (40 MG, 1/D), INTRAVENOUS
     Route: 042
     Dates: start: 20050928
  2. TAXOTERE [Concomitant]
  3. LITICAN (ALIZAPRIDE) [Concomitant]
  4. ZYRTEC [Concomitant]
  5. ZANTAC [Concomitant]

REACTIONS (3)
  - ANAPHYLACTIC REACTION [None]
  - HYPOTENSION [None]
  - TACHYCARDIA [None]
